FAERS Safety Report 18344154 (Version 3)
Quarter: 2021Q1

REPORT INFORMATION
  Report Type: Spontaneous
  Country: US (occurrence: US)
  Receive Date: 20201005
  Receipt Date: 20210319
  Transmission Date: 20210419
  Serious: Yes (Other)
  Sender: FDA-Public Use
  Company Number: US-PFIZER INC-2020379422

PATIENT
  Age: 57 Year
  Sex: Female

DRUGS (2)
  1. XELJANZ XR [Suspect]
     Active Substance: TOFACITINIB CITRATE
     Dosage: 11 MG
     Dates: start: 20200922, end: 202012
  2. XELJANZ XR [Suspect]
     Active Substance: TOFACITINIB CITRATE
     Dosage: 11 MG
     Dates: start: 20200831, end: 202011

REACTIONS (11)
  - Fatigue [Unknown]
  - Pain [Unknown]
  - Urinary tract infection [Unknown]
  - Upper respiratory tract infection [Unknown]
  - Diverticulitis [Unknown]
  - Drug ineffective [Unknown]
  - Rhinorrhoea [Unknown]
  - Intentional dose omission [Unknown]
  - Nasal congestion [Not Recovered/Not Resolved]
  - Blood glucose increased [Unknown]
  - Myalgia [Unknown]

NARRATIVE: CASE EVENT DATE: 202009
